FAERS Safety Report 6166940-0 (Version None)
Quarter: 2009Q2

REPORT INFORMATION
  Report Type: 
  Country: None (occurrence: None)
  Receive Date: 20090424
  Receipt Date: 20090417
  Transmission Date: 20091009
  Serious: Yes (Hospitalization)
  Sender: FDA-Public Use
  Company Number: DE-AVENTIS-200911042DE

PATIENT
  Age: 69 Year
  Sex: Female

DRUGS (3)
  1. TAXOTERE [Suspect]
     Route: 042
     Dates: start: 20080718, end: 20080718
  2. ADRIAMYCIN PFS [Suspect]
     Route: 042
     Dates: start: 20080718, end: 20080718
  3. CYCLOPHOSPHAMIDE [Suspect]
     Route: 042
     Dates: start: 20080718, end: 20080718

REACTIONS (1)
  - HYPERKALAEMIA [None]
